FAERS Safety Report 8266280-X (Version None)
Quarter: 2012Q1

REPORT INFORMATION
  Report Type: 
  Country: None (occurrence: None)
  Receive Date: 20120327
  Receipt Date: 20100427
  Transmission Date: 20120608
  Serious: Yes (Hospitalization)
  Sender: FDA-Public Use
  Company Number: PHHY2010US27257

PATIENT
  Age: 74 Year
  Sex: Male

DRUGS (3)
  1. GLEEVEC [Suspect]
     Indication: CHRONIC MYELOID LEUKAEMIA
     Dosage: 600 MG, QD, ORAL
     Route: 048
     Dates: start: 20070913
  2. BLOOD TRANSFUSION (NO INGREDIENTS/SUBSTANCES) [Concomitant]
  3. IRON SUPPLEMENTS (NO INGREDIENTS/SUBSTANCES) [Concomitant]

REACTIONS (3)
  - THERAPEUTIC RESPONSE DECREASED [None]
  - VOMITING [None]
  - NAUSEA [None]
